FAERS Safety Report 18306022 (Version 1)
Quarter: 2020Q3

REPORT INFORMATION
  Report Type: Spontaneous
  Country: US (occurrence: US)
  Receive Date: 20200923
  Receipt Date: 20200923
  Transmission Date: 20201103
  Serious: Yes (Hospitalization)
  Sender: FDA-Public Use
  Company Number: None

PATIENT
  Age: 65 Year
  Sex: Male

DRUGS (1)
  1. RIVAROXABAN (RIVAROXABAN 20MG TAB) [Suspect]
     Active Substance: RIVAROXABAN
     Route: 048

REACTIONS (8)
  - Nausea [None]
  - Gastric haemorrhage [None]
  - Dizziness [None]
  - Diarrhoea [None]
  - Hypotension [None]
  - Haemorrhage [None]
  - Vomiting [None]
  - Anaemia [None]

NARRATIVE: CASE EVENT DATE: 20200310
